FAERS Safety Report 6644846-8 (Version None)
Quarter: 2010Q1

REPORT INFORMATION
  Report Type: 
  Country: None (occurrence: None)
  Receive Date: 20100317
  Receipt Date: 20100302
  Transmission Date: 20100710
  Serious: Yes (Life-Threatening, Hospitalization)
  Sender: FDA-Public Use
  Company Number: 2010AL000046

PATIENT
  Age: 56 Year
  Sex: Male
  Weight: 60.6 kg

DRUGS (4)
  1. PRALATREXATE (PRALATREXATE) [Suspect]
     Indication: B-CELL LYMPHOMA
     Dosage: 15 MG/M**2;QOW;IV
     Route: 042
     Dates: start: 20100119, end: 20100119
  2. GEMCITABINE [Suspect]
     Indication: B-CELL LYMPHOMA
     Dosage: 400 MG/M**2;QOW;IV
     Route: 042
     Dates: start: 20100119, end: 20100119
  3. CON MEDS [Concomitant]
  4. PREV MEDS [Concomitant]

REACTIONS (3)
  - DEHYDRATION [None]
  - HYPOXIA [None]
  - NEUTROPENIA [None]
